FAERS Safety Report 5217667-0 (Version None)
Quarter: 2007Q1

REPORT INFORMATION
  Report Type: 
  Country: None (occurrence: None)
  Receive Date: 20061130
  Receipt Date: 20060915
  Transmission Date: 20070707
  Serious: Yes (Other)
  Sender: FDA-Public Use
  Company Number: US200512002840

PATIENT
  Age: 30 Year
  Sex: Male
  Weight: 136.1 kg

DRUGS (8)
  1. ZYPREXA [Suspect]
     Indication: ANXIETY
     Dosage: 5 MG; 7.5 MG
     Dates: end: 20030701
  2. ZYPREXA [Suspect]
     Indication: ANXIETY
     Dosage: 5 MG; 7.5 MG
     Dates: start: 19990217
  3. GEODON [Concomitant]
  4. SEROQUEL [Concomitant]
  5. NAVANE [Concomitant]
  6. TOPIRAMATE [Concomitant]
  7. REMERON [Concomitant]
  8. SERZONE [Concomitant]

REACTIONS (9)
  - BLOOD CHOLESTEROL [None]
  - BLOOD TRIGLYCERIDES INCREASED [None]
  - DIABETES MELLITUS NON-INSULIN-DEPENDENT [None]
  - HYPERTENSION [None]
  - INSULIN RESISTANCE [None]
  - METABOLIC DISORDER [None]
  - OBESITY [None]
  - VISION BLURRED [None]
  - WEIGHT INCREASED [None]
